FAERS Safety Report 11500613 (Version 1)
Quarter: 2015Q3

REPORT INFORMATION
  Report Type: Spontaneous
  Country: US (occurrence: None)
  Receive Date: 20150911
  Receipt Date: 20150911
  Transmission Date: 20151125
  Serious: Yes (Other)
  Sender: FDA-Public Use
  Company Number: None

PATIENT
  Age: 60 Year
  Sex: Female

DRUGS (1)
  1. SIMPONI [Suspect]
     Active Substance: GOLIMUMAB
     Indication: PSORIASIS
     Dosage: EVERY 28 DAYS?INJECTABLE
     Route: 058
     Dates: start: 201503

REACTIONS (1)
  - Skin cancer [None]

NARRATIVE: CASE EVENT DATE: 20150826
